FAERS Safety Report 5874830-3 (Version None)
Quarter: 2008Q3

REPORT INFORMATION
  Report Type: 
  Country: None (occurrence: None)
  Receive Date: 20080904
  Receipt Date: 20080819
  Transmission Date: 20090109
  Serious: Yes (Death)
  Sender: FDA-Public Use
  Company Number: PAR_02252_2008

PATIENT
  Sex: Male
  Weight: 10 kg

DRUGS (3)
  1. CAPOTEN (CAPOTEN-CAPTOPRIL) [Suspect]
     Indication: CARDIAC DISORDER
     Dosage: 5 MG TID ORAL
     Route: 048
     Dates: start: 20080401
  2. FRUSEMIDE [Concomitant]
  3. ASPIRIN [Concomitant]

REACTIONS (3)
  - EXPIRED DRUG ADMINISTERED [None]
  - FALL [None]
  - MALAISE [None]
